FAERS Safety Report 19793339 (Version 2)
Quarter: 2021Q4

REPORT INFORMATION
  Report Type: Spontaneous
  Country: CA (occurrence: CA)
  Receive Date: 20210906
  Receipt Date: 20211027
  Transmission Date: 20220303
  Serious: Yes (Other)
  Sender: FDA-Public Use
  Company Number: NVSC2021CA201040

PATIENT
  Age: 3 Year
  Sex: Female

DRUGS (2)
  1. ILARIS [Suspect]
     Active Substance: CANAKINUMAB
     Indication: Autoinflammatory disease
     Dosage: UNK
     Route: 065
     Dates: start: 202103
  2. ILARIS [Suspect]
     Active Substance: CANAKINUMAB
     Dosage: 3 MG/KG, Q 8 WEEKS (PRN)
     Route: 058
     Dates: start: 20210315

REACTIONS (2)
  - Neutropenia [Recovering/Resolving]
  - Neutrophil count abnormal [Recovering/Resolving]
